FAERS Safety Report 10237127 (Version 2)
Quarter: 2014Q2

REPORT INFORMATION
  Report Type: Spontaneous
  Country: PH (occurrence: PH)
  Receive Date: 20140613
  Receipt Date: 20140616
  Transmission Date: 20141212
  Serious: Yes (Other)
  Sender: FDA-Public Use
  Company Number: PH-ABBVIE-14P-128-1245619-00

PATIENT
  Age: 41 Year
  Sex: Male

DRUGS (2)
  1. FENOFIBRATE [Suspect]
     Indication: PRODUCT USED FOR UNKNOWN INDICATION
  2. COLCHICINE [Interacting]
     Indication: GOUT

REACTIONS (2)
  - Myopathy [Recovering/Resolving]
  - Drug interaction [Recovering/Resolving]
